FAERS Safety Report 5724926-1 (Version None)
Quarter: 2008Q2

REPORT INFORMATION
  Report Type: 
  Country: None (occurrence: None)
  Receive Date: 20080430
  Receipt Date: 20080430
  Transmission Date: 20081010
  Serious: No
  Sender: FDA-Public Use
  Company Number: None

PATIENT
  Age: 72 Year
  Sex: Female

DRUGS (15)
  1. ARIXTRA [Suspect]
     Indication: ANTICOAGULANT THERAPY
     Dosage: 7.5 MG DAILY SQ
     Route: 058
     Dates: start: 20060801, end: 20060808
  2. ALBUTEROL [Concomitant]
  3. ASPIRIN [Concomitant]
  4. QUESTRAN [Concomitant]
  5. PLAVIX [Concomitant]
  6. DIGOXIN [Concomitant]
  7. PROCRIT [Concomitant]
  8. LEXAPRO [Concomitant]
  9. LASIX [Concomitant]
  10. LOPRESSOR [Concomitant]
  11. PREDNISONE TAB [Concomitant]
  12. ACCUPRIL [Concomitant]
  13. ZANTAC [Concomitant]
  14. VANCOMYCIN [Concomitant]
  15. COUMADIN [Concomitant]

REACTIONS (2)
  - EPISTAXIS [None]
  - HEPARIN-INDUCED THROMBOCYTOPENIA [None]
